FAERS Safety Report 15886745 (Version 1)
Quarter: 2019Q1

REPORT INFORMATION
  Report Type: Spontaneous
  Country: DE (occurrence: DE)
  Receive Date: 20190129
  Receipt Date: 20190129
  Transmission Date: 20190417
  Serious: Yes (Other)
  Sender: FDA-Public Use
  Company Number: DE-ELI_LILLY_AND_COMPANY-DE201901011507

PATIENT
  Age: 51 Year
  Sex: Female
  Weight: 88 kg

DRUGS (4)
  1. FLUANXOL [FLUPENTIXOL DIHYDROCHLORIDE] [Suspect]
     Active Substance: FLUPENTIXOL DIHYDROCHLORIDE
     Indication: PRODUCT USED FOR UNKNOWN INDICATION
     Dosage: UNK UNK, UNKNOWN
     Route: 065
  2. ZYPREXA [Suspect]
     Active Substance: OLANZAPINE
     Indication: PRODUCT USED FOR UNKNOWN INDICATION
     Dosage: UNK, UNKNOWN
     Route: 065
  3. AKINETON [Suspect]
     Active Substance: BIPERIDEN HYDROCHLORIDE
     Indication: PRODUCT USED FOR UNKNOWN INDICATION
     Dosage: UNK UNK, UNKNOWN
     Route: 065
  4. HALDOL [Suspect]
     Active Substance: HALOPERIDOL
     Indication: PRODUCT USED FOR UNKNOWN INDICATION
     Dosage: UNK UNK, UNKNOWN
     Route: 065

REACTIONS (10)
  - Muscle spasms [Recovered/Resolved]
  - Apathy [Recovered/Resolved]
  - Disturbance in attention [Recovered/Resolved]
  - Laziness [Recovered/Resolved]
  - Loss of personal independence in daily activities [Recovered/Resolved]
  - Paralysis [Recovered/Resolved]
  - Head discomfort [Recovered/Resolved]
  - Drug abuse [Recovered/Resolved]
  - Obesity [Recovered/Resolved]
  - Fatigue [Recovered/Resolved]
